FAERS Safety Report 5688310-1 (Version None)
Quarter: 2008Q1

REPORT INFORMATION
  Report Type: 
  Country: None (occurrence: None)
  Receive Date: 20080328
  Receipt Date: 20080328
  Transmission Date: 20080703
  Serious: No
  Sender: FDA-Public Use
  Company Number: None

PATIENT
  Sex: Female
  Weight: 68.0396 kg

DRUGS (2)
  1. ACCOLATE [Suspect]
     Indication: ASTHMA
     Dosage: 20MG 2 TIMES PER DAY PO
     Route: 048
     Dates: start: 19960101, end: 20080327
  2. ACCOLATE [Suspect]
     Indication: LUNG INJURY
     Dosage: 20MG 2 TIMES PER DAY PO
     Route: 048
     Dates: start: 19960101, end: 20080327

REACTIONS (1)
  - DRUG INEFFECTIVE [None]
